FAERS Safety Report 11694440 (Version 5)
Quarter: 2016Q1

REPORT INFORMATION
  Report Type: Spontaneous
  Country: US (occurrence: US)
  Receive Date: 20151103
  Receipt Date: 20160226
  Transmission Date: 20160525
  Serious: Yes (Other)
  Sender: FDA-Public Use
  Company Number: US-BAYER-2015-447306

PATIENT
  Age: 25 Year
  Sex: Female
  Weight: 67.57 kg

DRUGS (3)
  1. TORADOL [Concomitant]
     Active Substance: KETOROLAC TROMETHAMINE
     Dosage: UNK
     Dates: start: 20151013, end: 20151013
  2. IBUPROFEN. [Concomitant]
     Active Substance: IBUPROFEN
     Dosage: 800 MG, PRN WITH FOOD
     Route: 048
  3. MIRENA [Suspect]
     Active Substance: LEVONORGESTREL
     Indication: CONTRACEPTION
     Dosage: 20 MCG/24HR, CONT
     Route: 015
     Dates: start: 20150217, end: 20151021

REACTIONS (12)
  - Procedural pain [None]
  - Device use error [None]
  - Hypomenorrhoea [None]
  - Device breakage [Recovered/Resolved]
  - Nervousness [None]
  - Complication of device removal [None]
  - Device difficult to use [Not Recovered/Not Resolved]
  - Embedded device [Recovered/Resolved]
  - Procedural pain [None]
  - Dysmenorrhoea [None]
  - Product quality issue [None]
  - Helplessness [None]

NARRATIVE: CASE EVENT DATE: 2015
